FAERS Safety Report 19182298 (Version 3)
Quarter: 2021Q2

REPORT INFORMATION
  Report Type: Report from Study
  Country: None (occurrence: US)
  Receive Date: 20210427
  Receipt Date: 20210524
  Transmission Date: 20210717
  Serious: Yes (Other)
  Sender: FDA-Public Use
  Company Number: US-ABBVIE-21K-163-3875988-00

PATIENT
  Age: 54 Year
  Sex: Female
  Weight: 74.46 kg

DRUGS (13)
  1. COVID?19 VACCINE NOS. [Suspect]
     Active Substance: COVID-19 VACCINE NOS
     Indication: COVID-19 IMMUNISATION
     Dosage: FIRST DOSE
     Route: 030
     Dates: start: 2021, end: 2021
  2. HYDROXYCHLOROQUINE [Concomitant]
     Active Substance: HYDROXYCHLOROQUINE
     Indication: SYSTEMIC LUPUS ERYTHEMATOSUS
  3. VENLAFAXINE [Concomitant]
     Active Substance: VENLAFAXINE HYDROCHLORIDE
     Indication: ANXIETY
  4. SPIRONOLACTONE. [Concomitant]
     Active Substance: SPIRONOLACTONE
     Indication: FLUID RETENTION
  5. MONTELUKAST [Concomitant]
     Active Substance: MONTELUKAST SODIUM
     Indication: HYPERSENSITIVITY
  6. RINVOQ [Suspect]
     Active Substance: UPADACITINIB
     Indication: RHEUMATOID ARTHRITIS
     Route: 048
  7. VITAMIN D [Concomitant]
     Active Substance: VITAMIN D NOS
     Indication: SUPPLEMENTATION THERAPY
  8. COVID?19 VACCINE NOS. [Suspect]
     Active Substance: COVID-19 VACCINE NOS
     Dosage: SECOND DOSE
     Route: 030
     Dates: start: 2021, end: 2021
  9. OTEZLA [Concomitant]
     Active Substance: APREMILAST
     Indication: BEHCET^S SYNDROME
  10. RAYOS [Concomitant]
     Active Substance: PREDNISONE
     Indication: CONDITION AGGRAVATED
  11. FAMCICLOVIR. [Concomitant]
     Active Substance: FAMCICLOVIR
     Indication: EPSTEIN-BARR VIRUS INFECTION
  12. RINVOQ [Suspect]
     Active Substance: UPADACITINIB
     Indication: SYSTEMIC LUPUS ERYTHEMATOSUS
     Route: 048
     Dates: start: 202003
  13. SUNOSI [Concomitant]
     Active Substance: SOLRIAMFETOL
     Indication: FEELING ABNORMAL

REACTIONS (13)
  - Systemic lupus erythematosus [Not Recovered/Not Resolved]
  - Arthralgia [Recovered/Resolved]
  - Epstein-Barr virus infection [Recovered/Resolved]
  - Stress [Not Recovered/Not Resolved]
  - Depression [Unknown]
  - Tongue discolouration [Not Recovered/Not Resolved]
  - Arthralgia [Recovered/Resolved]
  - Abdominal distension [Not Recovered/Not Resolved]
  - Abdominal pain upper [Not Recovered/Not Resolved]
  - Epistaxis [Not Recovered/Not Resolved]
  - Fatigue [Not Recovered/Not Resolved]
  - Pain in extremity [Not Recovered/Not Resolved]
  - Bone atrophy [Not Recovered/Not Resolved]

NARRATIVE: CASE EVENT DATE: 202008
